FAERS Safety Report 7069441 (Version 4)
Quarter: 2013Q3

REPORT INFORMATION
  Report Type: Report from Study
  Country: US (occurrence: US)
  Receive Date: 20090731
  Receipt Date: 20130827
  Transmission Date: 20140515
  Serious: Yes (Hospitalization)
  Sender: FDA-Public Use
  Company Number: PHHO2009US06228

PATIENT
  Age: 69 Year
  Sex: Male

DRUGS (15)
  1. ALISKIREN [Suspect]
     Indication: CARDIOVASCULAR DISORDER
     Route: 048
     Dates: start: 20080220, end: 20090517
  2. ALISKIREN [Suspect]
     Route: 048
     Dates: start: 20090519
  3. DIOVAN [Suspect]
  4. NORVASC [Suspect]
  5. ALLOPURINOL [Concomitant]
  6. ASPIRIN [Concomitant]
  7. ALLEGRA [Concomitant]
  8. MIRAPEX [Concomitant]
  9. NITRO [Concomitant]
  10. LEVOTHYROXINE [Concomitant]
  11. OMEPRAZOLE [Concomitant]
  12. PROVIGIL [Concomitant]
  13. COUMADIN [Concomitant]
  14. LANTUS [Concomitant]
  15. GLIMEPIRIDE [Concomitant]

REACTIONS (6)
  - Hypovolaemia [Recovered/Resolved]
  - Hypotension [Recovered/Resolved]
  - Dizziness [Recovered/Resolved]
  - Hyperkalaemia [Recovered/Resolved]
  - Ventricular extrasystoles [Recovered/Resolved]
  - Anaemia [Recovered/Resolved]
